FAERS Safety Report 4971115-4 (Version None)
Quarter: 2006Q1

REPORT INFORMATION
  Report Type: 
  Country: None (occurrence: None)
  Receive Date: 20060227
  Receipt Date: 20050316
  Transmission Date: 20060701
  Serious: Yes (Life-Threatening, Hospitalization, Disabling)
  Sender: FDA-Public Use
  Company Number: WAES 0503USA02828

PATIENT
  Sex: Female

DRUGS (3)
  1. ZOCOR [Suspect]
     Indication: HYPERLIPIDAEMIA
     Dosage: 20 MG/DAILY/PO
     Route: 048
  2. ZOCOR [Suspect]
     Indication: HYPERLIPIDAEMIA
     Dosage: 40 MG/DAILY/PO
     Route: 048
  3. ZOCOR [Suspect]
     Indication: HYPERLIPIDAEMIA
     Dosage: 80 MG/DAILY/PO
     Route: 048

REACTIONS (2)
  - ADVERSE EVENT [None]
  - RHABDOMYOLYSIS [None]
